FAERS Safety Report 19060762 (Version 1)
Quarter: 2021Q1

REPORT INFORMATION
  Report Type: Spontaneous
  Country: US (occurrence: US)
  Receive Date: 20210325
  Receipt Date: 20210325
  Transmission Date: 20210420
  Serious: Yes (Hospitalization)
  Sender: FDA-Public Use
  Company Number: US-JNJFOC-20210344069

PATIENT
  Sex: Female

DRUGS (1)
  1. RISPERDAL [Suspect]
     Active Substance: RISPERIDONE
     Indication: PRODUCT USED FOR UNKNOWN INDICATION
     Route: 048

REACTIONS (7)
  - Eye movement disorder [Unknown]
  - Hallucination [Unknown]
  - Anxiety [Unknown]
  - Tremor [Unknown]
  - Abdominal discomfort [Unknown]
  - Vomiting [Unknown]
  - Somnolence [Unknown]
